FAERS Safety Report 8960022 (Version 1)
Quarter: 2012Q4

REPORT INFORMATION
  Report Type: 
  Country: US (occurrence: US)
  Receive Date: 20121212
  Receipt Date: 20121212
  Transmission Date: 20130627
  Serious: Yes (Hospitalization)
  Sender: FDA-Public Use
  Company Number: US-BAYER-2012-129018

PATIENT
  Age: 24 Year
  Sex: Female
  Weight: 84.81 kg

DRUGS (1)
  1. OCELLA [Suspect]
     Dosage: UNK
     Dates: start: 2005, end: 2007

REACTIONS (6)
  - Cholelithiasis [None]
  - Cholecystitis infective [None]
  - Abdominal pain upper [None]
  - Weight increased [None]
  - Discomfort [None]
  - Dyspepsia [None]
